FAERS Safety Report 4381052-4 (Version None)
Quarter: 2004Q2

REPORT INFORMATION
  Report Type: 
  Country: None (occurrence: None)
  Receive Date: 20040621
  Receipt Date: 20040610
  Transmission Date: 20050107
  Serious: Yes (Other)
  Sender: FDA-Public Use
  Company Number: PHBS2004JP07693

PATIENT
  Age: 54 Year
  Sex: Male

DRUGS (1)
  1. LUDIOMIL [Suspect]
     Route: 048

REACTIONS (4)
  - DRUG ERUPTION [None]
  - DRUG HYPERSENSITIVITY [None]
  - INFLUENZA LIKE ILLNESS [None]
  - WHITE BLOOD CELL COUNT INCREASED [None]
